FAERS Safety Report 5065514-2 (Version None)
Quarter: 2006Q3

REPORT INFORMATION
  Report Type: 
  Country: None (occurrence: None)
  Receive Date: 20060731
  Receipt Date: 20060721
  Transmission Date: 20061208
  Serious: Yes (Death, Life-Threatening, Hospitalization, Other)
  Sender: FDA-Public Use
  Company Number: US-BRISTOL-MYERS SQUIBB COMPANY-13450218

PATIENT
  Age: 61 Year
  Sex: Male

DRUGS (2)
  1. COUMADIN [Suspect]
  2. LOVENOX [Suspect]
     Indication: THROMBOSIS
     Dates: start: 20031001, end: 20040101

REACTIONS (7)
  - CEREBRAL HAEMORRHAGE [None]
  - COMA [None]
  - DIPLOPIA [None]
  - EPISTAXIS [None]
  - PAIN [None]
  - PNEUMONIA [None]
  - RASH GENERALISED [None]
